FAERS Safety Report 24220799 (Version 3)
Quarter: 2025Q1

REPORT INFORMATION
  Report Type: Spontaneous
  Country: US (occurrence: US)
  Receive Date: 20240818
  Receipt Date: 20250307
  Transmission Date: 20250408
  Serious: Yes (Other)
  Sender: BAUSCH AND LOMB
  Company Number: US-BAUSCHBL-2024BNL031511

PATIENT
  Age: 61 Year
  Sex: Male
  Weight: 83.91 kg

DRUGS (5)
  1. XIPERE [Suspect]
     Active Substance: TRIAMCINOLONE ACETONIDE
     Indication: Macular oedema
     Route: 065
     Dates: start: 20240501
  2. PREDNISOLONE SODIUM PHOSPHATE [Suspect]
     Active Substance: PREDNISOLONE SODIUM PHOSPHATE
     Indication: Macular oedema
     Route: 065
  3. PREDNISOLONE ACETATE [Concomitant]
     Active Substance: PREDNISOLONE ACETATE
     Indication: Product used for unknown indication
     Route: 065
  4. BROMFENAC [Concomitant]
     Active Substance: BROMFENAC
     Indication: Product used for unknown indication
     Route: 065
  5. BENAZEPRIL [Concomitant]
     Active Substance: BENAZEPRIL HYDROCHLORIDE
     Indication: Product used for unknown indication
     Route: 065

REACTIONS (5)
  - Glaucoma [Not Recovered/Not Resolved]
  - Intraocular pressure increased [Unknown]
  - Eye pain [Not Recovered/Not Resolved]
  - Eye swelling [Unknown]
  - Halo vision [Unknown]

NARRATIVE: CASE EVENT DATE: 20240501
